FAERS Safety Report 13888934 (Version 1)
Quarter: 2017Q3

REPORT INFORMATION
  Report Type: Spontaneous
  Country: US (occurrence: US)
  Receive Date: 20170821
  Receipt Date: 20170821
  Transmission Date: 20171127
  Serious: No
  Sender: FDA-Public Use
  Company Number: US-MYLANLABS-2017M1012010

PATIENT
  Age: 56 Year
  Sex: Female
  Weight: 60.77 kg

DRUGS (2)
  1. TIROSINT [Concomitant]
     Active Substance: LEVOTHYROXINE SODIUM
     Indication: PRODUCT USED FOR UNKNOWN INDICATION
     Dosage: UNK, QD
  2. LIOTHYRONINE SODIUM TABLETS, USP [Suspect]
     Active Substance: LIOTHYRONINE SODIUM
     Indication: PRODUCT USED FOR UNKNOWN INDICATION
     Dosage: 5 ?G, BID
     Route: 048
     Dates: start: 20170219, end: 201702

REACTIONS (6)
  - Drug ineffective [Recovered/Resolved]
  - Slow speech [Recovered/Resolved]
  - Malaise [Recovered/Resolved]
  - Product quality issue [Recovered/Resolved]
  - Memory impairment [Unknown]
  - Feeling abnormal [Recovered/Resolved]

NARRATIVE: CASE EVENT DATE: 201702
